FAERS Safety Report 25411214 (Version 1)
Quarter: 2025Q2

REPORT INFORMATION
  Report Type: Spontaneous
  Country: NL (occurrence: NL)
  Receive Date: 20250609
  Receipt Date: 20250609
  Transmission Date: 20250717
  Serious: Yes (Life-Threatening)
  Sender: MERCK SHARP & DOHME LLC
  Company Number: None

PATIENT
  Age: 63 Year
  Sex: Female
  Weight: 43.6 kg

DRUGS (6)
  1. PEMBROLIZUMAB [Suspect]
     Active Substance: PEMBROLIZUMAB
     Indication: Non-small cell lung cancer stage IV
     Dates: start: 20250212, end: 20250508
  2. CEFUROXIM INFVLST 15MG/ML / Brand name not specified [Concomitant]
  3. OXYCODONE [Concomitant]
     Active Substance: OXYCODONE
     Route: 048
  4. METOCLOPRAMIDE INFVLST 5MG/ML (HCL-1-WATER) / Brand name not specified [Concomitant]
  5. METRONIDAZOLE INFVLST 5MG/ML / Brand name not specified [Concomitant]
  6. GENTAMICINE INFVLST 1MG/ML / Brand name not specified [Concomitant]

REACTIONS (2)
  - Intestinal perforation [Recovering/Resolving]
  - Colitis [Recovering/Resolving]
